FAERS Safety Report 16904195 (Version 9)
Quarter: 2022Q2

REPORT INFORMATION
  Report Type: Spontaneous
  Country: GB (occurrence: GB)
  Receive Date: 20191010
  Receipt Date: 20220412
  Transmission Date: 20220721
  Serious: Yes (Disabling, Other)
  Sender: FDA-Public Use
  Company Number: GB-NOVPHSZ-PHHY2019GB155758

PATIENT
  Age: 55 Year
  Sex: Male
  Weight: 63.53 kg

DRUGS (23)
  1. OMEPRAZOLE [Suspect]
     Active Substance: OMEPRAZOLE
     Indication: Gastrooesophageal reflux disease
     Dosage: UNK UNK, QD (DOSE NUMBER 1, QD)
     Route: 065
  2. OMEPRAZOLE [Suspect]
     Active Substance: OMEPRAZOLE
     Indication: Duodenal ulcer
     Dosage: 40 MILLIGRAM, QD (OMEPRAZOLE 40 MG DAILY)
     Route: 048
     Dates: start: 1992, end: 200202
  3. OMEPRAZOLE [Suspect]
     Active Substance: OMEPRAZOLE
     Dosage: 1 DOSAGE FORM, QD
     Route: 065
  4. OMEPRAZOLE [Suspect]
     Active Substance: OMEPRAZOLE
     Dosage: 20 MILLIGRAM, QD (OMEPRAZOLE CHEMO IBERICA 20 MG ONCE DAILY)
     Route: 048
     Dates: start: 2002, end: 2017
  5. OMEPRAZOLE [Suspect]
     Active Substance: OMEPRAZOLE
     Dosage: 20 MILLIGRAM, QD
     Route: 065
     Dates: start: 201812
  6. OMEPRAZOLE [Suspect]
     Active Substance: OMEPRAZOLE
     Dosage: 20 MILLIGRAM, QD ((OMEPRAZOCHEMO IBERICA 20 MG ONCE DAILY)
     Route: 048
     Dates: start: 2019
  7. OMEPRAZOLE [Suspect]
     Active Substance: OMEPRAZOLE
     Dosage: 40 MILLIGRAM, QD (OMEPRAZOLE 40 MG DAILY)
     Route: 048
     Dates: start: 1992, end: 201802
  8. OMEPRAZOLE [Suspect]
     Active Substance: OMEPRAZOLE
     Dosage: 20 MILLIGRAM, QD ((OMEPRAZOLE CHEMO IBERICA 20 MG ONCE DAILY) )
     Route: 048
     Dates: start: 2019
  9. HYDROXOCOBALAMIN [Suspect]
     Active Substance: HYDROXOCOBALAMIN
     Indication: Product used for unknown indication
     Dosage: UNK (STANDARD LOADING DOSE), START DATE: ??-JAN-2019
     Route: 030
  10. HYDROXOCOBALAMIN [Suspect]
     Active Substance: HYDROXOCOBALAMIN
     Dosage: UNK (TOP UP DOSE), START DATE: ??-JAN-2019
     Route: 030
  11. HYDROXOCOBALAMIN [Suspect]
     Active Substance: HYDROXOCOBALAMIN
     Dosage: UNK (STANDARD LOADING DOSE), START DATE: ??-JAN-2019
     Route: 030
     Dates: start: 201901
  12. HYDROXOCOBALAMIN [Suspect]
     Active Substance: HYDROXOCOBALAMIN
     Dosage: UNK (TOP UP DOSE), START DATE: ??-JAN-2019
     Route: 030
     Dates: start: 201904
  13. LEUCOVORIN CALCIUM [Suspect]
     Active Substance: LEUCOVORIN CALCIUM
     Indication: Cardiovascular disorder
     Dosage: 800 MILLIGRAM, QD
     Route: 065
  14. FOLIC ACID [Concomitant]
     Active Substance: FOLIC ACID
     Indication: Cardiovascular event prophylaxis
     Dosage: 800 MICROGRAM, QD (FOLIC ACID 800 MCG DAILY, START DATE:2004)
  15. SIMVASTATIN [Concomitant]
     Active Substance: SIMVASTATIN
     Indication: Cardiovascular event prophylaxis
     Dosage: 40 MILLIGRAM, QD (SIMVASTATIN 40 MG DAILY, START DATE: ??-???-2004)
     Route: 065
  16. SIMVASTATIN [Concomitant]
     Active Substance: SIMVASTATIN
     Dosage: 40 MILLIGRAM, QD (START DATE: ??-???-2004)
     Route: 065
  17. RISEDRONATE SODIUM [Concomitant]
     Active Substance: RISEDRONATE SODIUM
     Indication: Osteoporosis
     Dosage: 35 MILLIGRAM, QW (RISEDRONIC ACID 35 MG WEEKLY, START DATE: ??-FEB-2018)
  18. RISEDRONATE SODIUM [Concomitant]
     Active Substance: RISEDRONATE SODIUM
     Dosage: 35 MILLIGRAM, QW
     Route: 065
     Dates: start: 201802
  19. ROPINIROLE [Concomitant]
     Active Substance: ROPINIROLE
     Indication: Periodic limb movement disorder
     Dosage: 6 MILLIGRAM, QD ((ROPINIROLE 2 MG TDS, START DATE: ??-???-2002))
     Route: 065
     Dates: start: 2002
  20. ROPINIROLE [Concomitant]
     Active Substance: ROPINIROLE
     Dosage: 18 MILLIGRAM, QD (2 MG, TID  )
     Route: 065
     Dates: start: 2002
  21. ASPIRIN [Concomitant]
     Active Substance: ASPIRIN
     Indication: Cardiovascular event prophylaxis
     Dosage: 75 MILLIGRAM, QD (ASPIRIN 75 MG DAILY, START DATE: (2001))
     Route: 065
  22. Adcal [Concomitant]
     Indication: Osteoporosis
     Dosage: 1 DOSAGE FORM, QD (START DATE: FEB-2018)
     Route: 065
  23. Adcal [Concomitant]
     Dosage: UNK

REACTIONS (19)
  - Neuropathy vitamin B12 deficiency [Unknown]
  - Neuropathy peripheral [Not Recovered/Not Resolved]
  - Osteoporosis [Not Recovered/Not Resolved]
  - Spinal compression fracture [Unknown]
  - Incorrect product administration duration [Unknown]
  - Restless legs syndrome [Not Recovered/Not Resolved]
  - Malabsorption [Not Recovered/Not Resolved]
  - Peripheral sensorimotor neuropathy [Unknown]
  - Fall [Unknown]
  - Ulna fracture [Unknown]
  - Sensory loss [Unknown]
  - Treatment failure [Unknown]
  - Hand deformity [Unknown]
  - Asthenia [Unknown]
  - Hypoaesthesia [Unknown]
  - Exercise tolerance decreased [Unknown]
  - Somnolence [Unknown]
  - Balance disorder [Unknown]
  - Off label use [Unknown]

NARRATIVE: CASE EVENT DATE: 19920101
